FAERS Safety Report 4946642-6 (Version None)
Quarter: 2006Q1

REPORT INFORMATION
  Report Type: 
  Country: None (occurrence: None)
  Receive Date: 20060317
  Receipt Date: 20060308
  Transmission Date: 20060701
  Serious: Yes (Other)
  Sender: FDA-Public Use
  Company Number: US-JNJFOC-20060302239

PATIENT
  Sex: Male
  Weight: 32.66 kg

DRUGS (5)
  1. REMICADE [Suspect]
     Indication: CROHN'S DISEASE
     Route: 042
  2. ASACOL [Concomitant]
     Indication: CROHN'S DISEASE
  3. 6MP [Concomitant]
     Indication: CROHN'S DISEASE
  4. PREDNISONE [Concomitant]
     Indication: CROHN'S DISEASE
  5. PREVACID [Concomitant]
     Indication: GASTROOESOPHAGEAL REFLUX DISEASE

REACTIONS (7)
  - BACK PAIN [None]
  - COUGH [None]
  - INFUSION RELATED REACTION [None]
  - RENAL PAIN [None]
  - SENSATION OF FOREIGN BODY [None]
  - URINE ABNORMALITY [None]
  - URTICARIA [None]
